FAERS Safety Report 8942164 (Version 1)
Quarter: 2012Q4

REPORT INFORMATION
  Report Type: 
  Country: AT (occurrence: AT)
  Receive Date: 20121203
  Receipt Date: 20121203
  Transmission Date: 20130627
  Serious: Yes (Hospitalization)
  Sender: FDA-Public Use
  Company Number: AT-TEVA-373261ISR

PATIENT
  Age: 30 None
  Sex: Female
  Weight: 80 kg

DRUGS (4)
  1. CEPHALOBENE 1000 MG-FILMTABLETTEN [Suspect]
     Indication: DERMAL CYST
     Dosage: 2000 Milligram Daily; on 26-Nov only the morning table was taken.
     Route: 048
     Dates: start: 20121123, end: 20121126
  2. NEUROTOP TABLETTEN [Concomitant]
     Indication: EPILEPSY
     Dosage: 1200 Milligram Daily; Started more than 10 years ago
     Route: 048
  3. NEBILAN [Concomitant]
     Indication: HYPERTENSION
     Dosage: 50 Milligram Daily; Started approx. one year ago
     Route: 048
  4. RAMIPRIL/HCT 1A PHARMA 2.5 MG/12,5 MG [Concomitant]
     Indication: HYPERTENSION
     Dosage: 1 Dosage forms Daily; Started approx. one year ago;Ramipril/HCT 1A Pharma 2.5 mg/12,5 mg
     Route: 048

REACTIONS (2)
  - Epilepsy [Recovered/Resolved]
  - Blood pressure increased [Unknown]
